FAERS Safety Report 8918876 (Version 1)
Quarter: 2013Q1

REPORT INFORMATION
  Report Type: Spontaneous
  Country: US (occurrence: None)
  Receive Date: 20121115
  Receipt Date: 20121115
  Transmission Date: 20140127
  Serious: Yes (Other)
  Sender: FDA-Public Use
  Company Number: None

PATIENT
  Age: 42 Year
  Sex: Female
  Weight: 59.47 kg

DRUGS (25)
  1. RESTASIS [Suspect]
     Dosage: 2GGT BID OPTHAMIC
     Route: 047
     Dates: start: 20120711, end: 20120818
  2. CIPROFLOXACIN [Concomitant]
  3. VORICONAZOLE [Concomitant]
  4. PENTAMIDINE [Concomitant]
  5. VALTREX [Concomitant]
  6. AZITHROMYCIN [Concomitant]
  7. TACROLIMUS [Concomitant]
  8. BUDESONIDE [Concomitant]
  9. ONDANSETRON [Concomitant]
  10. ERGOCALCIFEROL (VITAMIN D2) [Concomitant]
  11. PANTOPROZOLE [Concomitant]
  12. MG-PLUS-PROTEIN [Concomitant]
  13. MORPHINE [Concomitant]
  14. LORAZEPAM [Concomitant]
  15. TEMAZEPAM [Concomitant]
  16. GUAIFENESIN [Concomitant]
  17. SIMETHICONE [Concomitant]
  18. BENZONATATE [Concomitant]
  19. ALBUTEROL SULFATE HFA [Concomitant]
  20. AEROSOL INHALER [Concomitant]
  21. PENICILLIN V [Concomitant]
  22. POTASSIUM [Concomitant]
  23. ZOLPIDEM [Concomitant]
  24. SALINE NASAL SPRAY [Concomitant]
  25. REFRESH PLUS [Suspect]

REACTIONS (2)
  - Acute myeloid leukaemia [None]
  - Leukaemia recurrent [None]
